FAERS Safety Report 9372993 (Version 1)
Quarter: 2013Q2

REPORT INFORMATION
  Report Type: Report from Study
  Country: DK (occurrence: DE)
  Receive Date: 20130627
  Receipt Date: 20130627
  Transmission Date: 20140414
  Serious: Yes (Other)
  Sender: FDA-Public Use
  Company Number: DE-FRI-1000046083

PATIENT
  Sex: Female

DRUGS (9)
  1. CITALOPRAM [Suspect]
     Dosage: 10 MG
     Route: 048
     Dates: start: 20080130, end: 20080203
  2. CITALOPRAM [Suspect]
     Dosage: 20 MG
     Route: 048
     Dates: start: 20080204, end: 20080205
  3. CITALOPRAM [Suspect]
     Dosage: 30 MG
     Route: 048
     Dates: start: 20080206
  4. SAROTEN [Suspect]
     Dosage: 100 MG
     Route: 048
     Dates: start: 20080130, end: 20080130
  5. SAROTEN [Suspect]
     Dosage: 125 MG
     Route: 048
     Dates: start: 20080131, end: 20080131
  6. SAROTEN [Suspect]
     Dosage: 25 MG
     Route: 048
     Dates: start: 20080201, end: 20080201
  7. DIAZEPAM [Concomitant]
     Dosage: 2 MG
     Route: 048
     Dates: start: 20080129, end: 20080129
  8. DIAZEPAM [Concomitant]
     Dosage: 8 MG
     Route: 048
     Dates: start: 20080130, end: 20080203
  9. DIAZEPAM [Concomitant]
     Dosage: 7 - 0 MG
     Route: 048
     Dates: start: 20080204, end: 20080212

REACTIONS (1)
  - Restless legs syndrome [Recovered/Resolved]
